FAERS Safety Report 4692829-X (Version None)
Quarter: 2005Q2

REPORT INFORMATION
  Report Type: 
  Country: None (occurrence: None)
  Receive Date: 20050617
  Receipt Date: 20030617
  Transmission Date: 20051028
  Serious: Yes (Other)
  Sender: FDA-Public Use
  Company Number: US-ROCHE-340514

PATIENT
  Sex: Female
  Weight: 99.8 kg

DRUGS (2)
  1. XENICAL [Suspect]
     Indication: DRUG USE FOR UNKNOWN INDICATION
     Route: 048
     Dates: start: 20020615
  2. DIURETIC [Concomitant]

REACTIONS (5)
  - ALOPECIA [None]
  - BLOOD POTASSIUM DECREASED [None]
  - CARDIAC FLUTTER [None]
  - DRY MOUTH [None]
  - FLATULENCE [None]
